FAERS Safety Report 9915038 (Version 1)
Quarter: 2014Q1

REPORT INFORMATION
  Report Type: Spontaneous
  Country: ES (occurrence: ES)
  Receive Date: 20140220
  Receipt Date: 20140220
  Transmission Date: 20141002
  Serious: Yes (Other)
  Sender: FDA-Public Use
  Company Number: ES-GILEAD-2014-0094695

PATIENT
  Age: 41 Year
  Sex: Female

DRUGS (4)
  1. TRUVADA [Suspect]
     Indication: ACQUIRED IMMUNODEFICIENCY SYNDROME
     Dosage: 300 MG, QD
     Route: 048
     Dates: start: 20100601, end: 20140204
  2. NORVIR [Suspect]
     Indication: ACQUIRED IMMUNODEFICIENCY SYNDROME
     Dosage: 100 MG, QD
     Route: 048
     Dates: start: 20100601, end: 20140204
  3. REYATAZ [Suspect]
     Indication: HIV TEST POSITIVE
     Dosage: 200 MG, QD
     Route: 048
     Dates: start: 20100601, end: 20140204
  4. METADONA [Suspect]
     Indication: PRODUCT USED FOR UNKNOWN INDICATION
     Dosage: 90 MG, QD
     Route: 048
     Dates: start: 20131001

REACTIONS (3)
  - Adrenal insufficiency [Not Recovered/Not Resolved]
  - Hypopituitarism [Not Recovered/Not Resolved]
  - Neuropathy peripheral [Recovering/Resolving]
